FAERS Safety Report 4863993-4 (Version None)
Quarter: 2005Q4

REPORT INFORMATION
  Report Type: 
  Country: None (occurrence: None)
  Receive Date: 20051222
  Receipt Date: 20050827
  Transmission Date: 20060501
  Serious: Yes (Death, Other)
  Sender: FDA-Public Use
  Company Number: US-BRISTOL-MYERS SQUIBB COMPANY-13093653

PATIENT
  Age: 57 Year
  Sex: Female

DRUGS (10)
  1. TEQUIN [Suspect]
     Route: 042
     Dates: start: 20000925, end: 20001003
  2. THEOPHYLLINE [Suspect]
     Route: 042
     Dates: start: 20000924
  3. ATROVENT [Suspect]
     Dates: start: 20000926
  4. ALBUTEROL [Suspect]
     Route: 055
     Dates: start: 20001001
  5. DIAMOX [Suspect]
     Dates: start: 20000930
  6. FENTANYL CITRATE [Suspect]
     Indication: PAIN
     Dates: start: 20000926
  7. ATIVAN [Suspect]
     Dates: start: 20000926
  8. HUMULIN INSULIN [Suspect]
     Dates: start: 20000926
  9. NICOTINE [Suspect]
     Route: 062
     Dates: start: 20000919
  10. NARCAN [Suspect]

REACTIONS (3)
  - BRADYCARDIA [None]
  - COMA [None]
  - MYOCLONIC EPILEPSY [None]
